FAERS Safety Report 25111527 (Version 2)
Quarter: 2025Q1

REPORT INFORMATION
  Report Type: Spontaneous
  Country: FR (occurrence: FR)
  Receive Date: 20250324
  Receipt Date: 20250331
  Transmission Date: 20250408
  Serious: Yes (Hospitalization, Other)
  Sender: MYLAN
  Company Number: FR-MYLANLABS-2025M1025134

PATIENT
  Age: 49 Year
  Sex: Female
  Weight: 51 kg

DRUGS (32)
  1. POSACONAZOLE [Suspect]
     Active Substance: POSACONAZOLE
     Indication: Prophylaxis
  2. POSACONAZOLE [Suspect]
     Active Substance: POSACONAZOLE
     Route: 065
  3. POSACONAZOLE [Suspect]
     Active Substance: POSACONAZOLE
     Route: 065
  4. POSACONAZOLE [Suspect]
     Active Substance: POSACONAZOLE
  5. AMBISOME [Suspect]
     Active Substance: AMPHOTERICIN B
     Indication: Antibiotic therapy
     Dates: start: 20250104, end: 20250111
  6. AMBISOME [Suspect]
     Active Substance: AMPHOTERICIN B
     Dates: start: 20250104, end: 20250111
  7. AMBISOME [Suspect]
     Active Substance: AMPHOTERICIN B
     Route: 065
     Dates: start: 20250104, end: 20250111
  8. AMBISOME [Suspect]
     Active Substance: AMPHOTERICIN B
     Route: 065
     Dates: start: 20250104, end: 20250111
  9. AMBISOME [Suspect]
     Active Substance: AMPHOTERICIN B
  10. AMBISOME [Suspect]
     Active Substance: AMPHOTERICIN B
  11. AMBISOME [Suspect]
     Active Substance: AMPHOTERICIN B
     Route: 065
  12. AMBISOME [Suspect]
     Active Substance: AMPHOTERICIN B
     Route: 065
  13. CEFTAZIDIME [Suspect]
     Active Substance: CEFTAZIDIME
     Indication: Antibiotic therapy
  14. CEFTAZIDIME [Suspect]
     Active Substance: CEFTAZIDIME
     Route: 065
  15. CEFTAZIDIME [Suspect]
     Active Substance: CEFTAZIDIME
     Route: 065
  16. CEFTAZIDIME [Suspect]
     Active Substance: CEFTAZIDIME
  17. LANSOPRAZOLE [Suspect]
     Active Substance: LANSOPRAZOLE
     Indication: Prophylaxis against gastrointestinal ulcer
  18. LANSOPRAZOLE [Suspect]
     Active Substance: LANSOPRAZOLE
     Route: 065
  19. LANSOPRAZOLE [Suspect]
     Active Substance: LANSOPRAZOLE
     Route: 065
  20. LANSOPRAZOLE [Suspect]
     Active Substance: LANSOPRAZOLE
  21. VANCOMYCIN [Suspect]
     Active Substance: VANCOMYCIN
     Indication: Antibiotic therapy
     Dates: start: 20250114, end: 20250117
  22. VANCOMYCIN [Suspect]
     Active Substance: VANCOMYCIN
     Dates: start: 20250114, end: 20250117
  23. VANCOMYCIN [Suspect]
     Active Substance: VANCOMYCIN
     Route: 065
     Dates: start: 20250114, end: 20250117
  24. VANCOMYCIN [Suspect]
     Active Substance: VANCOMYCIN
     Route: 065
     Dates: start: 20250114, end: 20250117
  25. VANCOMYCIN [Suspect]
     Active Substance: VANCOMYCIN
  26. VANCOMYCIN [Suspect]
     Active Substance: VANCOMYCIN
  27. VANCOMYCIN [Suspect]
     Active Substance: VANCOMYCIN
     Route: 065
  28. VANCOMYCIN [Suspect]
     Active Substance: VANCOMYCIN
     Route: 065
  29. AVIBACTAM SODIUM [Suspect]
     Active Substance: AVIBACTAM SODIUM
     Indication: Antibiotic therapy
  30. AVIBACTAM SODIUM [Suspect]
     Active Substance: AVIBACTAM SODIUM
     Route: 065
  31. AVIBACTAM SODIUM [Suspect]
     Active Substance: AVIBACTAM SODIUM
     Route: 065
  32. AVIBACTAM SODIUM [Suspect]
     Active Substance: AVIBACTAM SODIUM

REACTIONS (3)
  - Hepatic cytolysis [Not Recovered/Not Resolved]
  - Cholestasis [Not Recovered/Not Resolved]
  - Hyperbilirubinaemia [Not Recovered/Not Resolved]

NARRATIVE: CASE EVENT DATE: 20250101
